FAERS Safety Report 12621697 (Version 1)
Quarter: 2016Q3

REPORT INFORMATION
  Report Type: Spontaneous
  Country: US (occurrence: None)
  Receive Date: 20160803
  Receipt Date: 20160803
  Transmission Date: 20161109
  Serious: Yes (Death)
  Sender: FDA-Public Use
  Company Number: None

PATIENT
  Age: 74 Year
  Sex: Female

DRUGS (12)
  1. ROPINIROLE. [Concomitant]
     Active Substance: ROPINIROLE
  2. BUMETANIDE. [Concomitant]
     Active Substance: BUMETANIDE
  3. VITAMIN D [Concomitant]
     Active Substance: CHOLECALCIFEROL
  4. RENLEVA [Concomitant]
  5. SINEMET [Concomitant]
     Active Substance: CARBIDOPA\LEVODOPA
  6. CALCIUM [Concomitant]
     Active Substance: CALCIUM
  7. TRAMADOL. [Concomitant]
     Active Substance: TRAMADOL
  8. HYDROMORPHONE [Concomitant]
     Active Substance: HYDROMORPHONE
  9. VITAMIN B12 [Concomitant]
     Active Substance: CYANOCOBALAMIN
  10. METOPROLOL TARTRATE. [Concomitant]
     Active Substance: METOPROLOL TARTRATE
  11. POMALYST [Suspect]
     Active Substance: POMALIDOMIDE
     Indication: PLASMA CELL MYELOMA
     Route: 048
     Dates: start: 20160622, end: 20160712
  12. ASA [Concomitant]
     Active Substance: ASPIRIN

REACTIONS (2)
  - Malaise [None]
  - Disease progression [None]

NARRATIVE: CASE EVENT DATE: 20160801
